FAERS Safety Report 6115216-6 (Version None)
Quarter: 2009Q1

REPORT INFORMATION
  Report Type: 
  Country: None (occurrence: None)
  Receive Date: 20090313
  Receipt Date: 20090302
  Transmission Date: 20090719
  Serious: Yes (Other)
  Sender: FDA-Public Use
  Company Number: ES-PFIZER INC-2009177286

PATIENT

DRUGS (4)
  1. CABERGOLINE [Suspect]
     Dosage: UNK
  2. LEVODOPA [Concomitant]
  3. METHYLPHENIDATE [Concomitant]
  4. RASAGILINE [Concomitant]

REACTIONS (2)
  - PLEURAL EFFUSION [None]
  - PULMONARY HYPERTENSION [None]
